FAERS Safety Report 8264227-3 (Version None)
Quarter: 2012Q2

REPORT INFORMATION
  Report Type: 
  Country: None (occurrence: None)
  Receive Date: 20120406
  Receipt Date: 20120328
  Transmission Date: 20120825
  Serious: Yes (Other)
  Sender: FDA-Public Use
  Company Number: CA-JNJFOC-20120314520

PATIENT
  Sex: Female
  Weight: 88.6 kg

DRUGS (7)
  1. SYNTHROID [Concomitant]
     Route: 065
  2. PREVACID [Concomitant]
     Route: 065
  3. REMICADE [Suspect]
     Indication: CROHN'S DISEASE
     Route: 042
     Dates: start: 20111223
  4. MERCAPTOPURINE [Concomitant]
     Route: 065
  5. VITAMIN D [Concomitant]
     Route: 065
  6. VITAMIN B-12 [Concomitant]
     Route: 065
  7. CALCIUM CARBONATE [Concomitant]
     Route: 065

REACTIONS (5)
  - FAECES HARD [None]
  - STRESS [None]
  - ABDOMINAL PAIN UPPER [None]
  - ABDOMINAL DISTENSION [None]
  - CHANGE OF BOWEL HABIT [None]
